FAERS Safety Report 24137083 (Version 1)
Quarter: 2024Q3

REPORT INFORMATION
  Report Type: Spontaneous
  Country: GB (occurrence: GB)
  Receive Date: 20240725
  Receipt Date: 20240725
  Transmission Date: 20241017
  Serious: Yes (Other)
  Sender: TEVA
  Company Number: None

PATIENT
  Age: 67 Year
  Sex: Female

DRUGS (2)
  1. ATORVASTATIN [Suspect]
     Active Substance: ATORVASTATIN
     Dosage: 50G ONCE A DAY AT NIGHT
     Route: 065
  2. LORATADINE [Concomitant]
     Active Substance: LORATADINE
     Indication: Adverse drug reaction

REACTIONS (2)
  - Tendonitis [Recovered/Resolved]
  - Synovial cyst [Recovering/Resolving]
